FAERS Safety Report 13250963 (Version 1)
Quarter: 2017Q1

REPORT INFORMATION
  Report Type: Spontaneous
  Country: US (occurrence: US)
  Receive Date: 20170220
  Receipt Date: 20170220
  Transmission Date: 20170428
  Serious: No
  Sender: FDA-Public Use
  Company Number: US-TEVA-734631ACC

PATIENT
  Age: 4 Year
  Sex: Female

DRUGS (1)
  1. AMOXICILLIN FOR ORAL SUSPENSION [Suspect]
     Active Substance: AMOXICILLIN
     Dosage: SUSPENSION 400 MG/5 ML
     Route: 048
     Dates: start: 20170123

REACTIONS (1)
  - Abdominal pain upper [Unknown]

NARRATIVE: CASE EVENT DATE: 20170123
